FAERS Safety Report 4556346-X (Version None)
Quarter: 2005Q1

REPORT INFORMATION
  Report Type: 
  Country: None (occurrence: None)
  Receive Date: 20050103
  Receipt Date: 20040819
  Transmission Date: 20050727
  Serious: Yes (Other)
  Sender: FDA-Public Use
  Company Number: 2004UW17667

PATIENT
  Age: 69 Year
  Sex: Male
  Weight: 65.7716 kg

DRUGS (2)
  1. CRESTOR [Suspect]
     Indication: BLOOD CHOLESTEROL INCREASED
     Dosage: 10  MG PO
     Route: 048
     Dates: end: 20040501
  2. ADVIL [Concomitant]

REACTIONS (6)
  - ARTHRALGIA [None]
  - ASTHENIA [None]
  - INSOMNIA [None]
  - MYALGIA [None]
  - PAIN [None]
  - PAIN IN EXTREMITY [None]
